FAERS Safety Report 4396993-1 (Version None)
Quarter: 2004Q3

REPORT INFORMATION
  Report Type: 
  Country: None (occurrence: None)
  Receive Date: 20040709
  Receipt Date: 20040630
  Transmission Date: 20050211
  Serious: Yes (Hospitalization)
  Sender: FDA-Public Use
  Company Number: RS004402-J

PATIENT
  Age: 53 Year
  Sex: Female
  Weight: 37 kg

DRUGS (6)
  1. RABEPRAZOLE SODIUM [Suspect]
     Indication: REFLUX OESOPHAGITIS
     Dosage: 10 MG, 1 IN 1 D, ORAL
     Route: 048
     Dates: start: 20040212, end: 20040405
  2. BENET (RISEDRONATE SODIUM) [Concomitant]
  3. SPIROPENT (CLENBUTEROL HYDROCHLORIDE) [Concomitant]
  4. IMURAN [Concomitant]
  5. MEDROL [Concomitant]
  6. ONEALFA (ALFACALCIDOL) [Concomitant]

REACTIONS (6)
  - DISEASE RECURRENCE [None]
  - EOSINOPHILIC PNEUMONIA [None]
  - HEART RATE INCREASED [None]
  - INTERSTITIAL LUNG DISEASE [None]
  - NEUTROPHIL PERCENTAGE DECREASED [None]
  - RETICULOENDOTHELIAL DYSFUNCTION [None]
